FAERS Safety Report 21868740 (Version 2)
Quarter: 2023Q1

REPORT INFORMATION
  Report Type: Report from Study
  Country: DE (occurrence: DE)
  Receive Date: 20230117
  Receipt Date: 20230126
  Transmission Date: 20230418
  Serious: Yes (Hospitalization)
  Sender: FDA-Public Use
  Company Number: DE-BAXTER-2023BAX010552

PATIENT
  Age: 45 Year
  Sex: Female

DRUGS (3)
  1. OLIMEL [Suspect]
     Active Substance: AMINO ACIDS\DEXTROSE\SOYBEAN OIL
     Indication: Parenteral nutrition
     Dosage: 1500 ML AT UNSPECIFIED FREQUENCY ADMINISTRATED VIA CENTRAL VENOUS ROUTE
     Route: 042
     Dates: start: 20221231, end: 20230119
  2. ELECTROLYTES NOS\MINERALS [Suspect]
     Active Substance: ELECTROLYTES NOS\MINERALS
     Indication: Parenteral nutrition
     Dosage: 10 ML AT UNSPECIFIED FREQUENCY ADMINISTRATED VIA CENTRAL VENOUS ROUTE
     Route: 042
     Dates: start: 20221221
  3. UNSPECIFIED INGREDIENT [Suspect]
     Active Substance: UNSPECIFIED INGREDIENT
     Dosage: UNK
     Route: 065

REACTIONS (1)
  - Blood test abnormal [Recovered/Resolved]

NARRATIVE: CASE EVENT DATE: 20230112
